FAERS Safety Report 19891551 (Version 1)
Quarter: 2021Q3

REPORT INFORMATION
  Report Type: Report from Study
  Country: CA (occurrence: CA)
  Receive Date: 20210928
  Receipt Date: 20210928
  Transmission Date: 20211014
  Serious: Yes (Other)
  Sender: FDA-Public Use
  Company Number: CA-JNJFOC-20210918629

PATIENT
  Age: 64 Year
  Sex: Male
  Weight: 82 kg

DRUGS (2)
  1. REMICADE [Suspect]
     Active Substance: INFLIXIMAB
     Route: 042
     Dates: start: 20210921
  2. REMICADE [Suspect]
     Active Substance: INFLIXIMAB
     Indication: CROHN^S DISEASE
     Dosage: 10MG/KG?PATIENT RECEIVED INFUSION ON 20?APR?2021.?PATIENT RECEIVED INFUSION ON 12?AUG?2021.
     Route: 042
     Dates: start: 20210407

REACTIONS (6)
  - Gastrointestinal inflammation [Unknown]
  - Off label use [Unknown]
  - Medullary thyroid cancer [Unknown]
  - Aphonia [Not Recovered/Not Resolved]
  - Product use issue [Unknown]
  - Drug level decreased [Not Recovered/Not Resolved]

NARRATIVE: CASE EVENT DATE: 2021
